FAERS Safety Report 14698160 (Version 3)
Quarter: 2019Q1

REPORT INFORMATION
  Report Type: Spontaneous
  Country: DE (occurrence: DE)
  Receive Date: 20180330
  Receipt Date: 20190307
  Transmission Date: 20190417
  Serious: Yes (Hospitalization, Other)
  Sender: FDA-Public Use
  Company Number: DE-SUN PHARMACEUTICAL INDUSTRIES LTD-2018RR-168622

PATIENT
  Age: 49 Year
  Sex: Female
  Weight: 60 kg

DRUGS (8)
  1. FEMIGOA [Concomitant]
     Active Substance: ETHINYL ESTRADIOL\LEVONORGESTREL
     Indication: CONTRACEPTION
     Dosage: DOSAGE FORM: UNSPECIFIED ()
     Route: 048
  2. IBUPROFEN. [Suspect]
     Active Substance: IBUPROFEN
     Indication: BACK PAIN
     Dosage: DOSAGE FORM: UNSPECIFIED
     Route: 048
  3. ARCOXIA [Suspect]
     Active Substance: ETORICOXIB
     Dosage: 120 MILLIGRAM, BID
     Route: 048
     Dates: start: 20060222, end: 20060307
  4. KATADOLON [Suspect]
     Active Substance: FLUPIRTINE
     Indication: SPINAL PAIN
     Dosage: 100 MILLIGRAM, TID
     Route: 048
     Dates: start: 20060131, end: 20060307
  5. ARCOXIA [Suspect]
     Active Substance: ETORICOXIB
     Indication: BACK PAIN
     Dosage: 60 MILLIGRAM, QD (60 MG, QD (ALSO REPORTED AS120 MILLIGRAM DAILY)
     Route: 048
  6. KATADOLON S LONG [Suspect]
     Active Substance: FLUPIRTINE
     Indication: BACK PAIN
     Dosage: 1 DOSAGE FORM DAILY
     Route: 048
  7. MYDOCALM (LIDOCAINE HYDROCHLORIDE (+) TOLPERISONE HYDROCHLORIDE) [Suspect]
     Active Substance: LIDOCAINE HYDROCHLORIDE\TOLPERISONE HYDROCHLORIDE
     Indication: SPINAL PAIN
     Dosage: 50 MILLIGRAM, TID
     Route: 048
     Dates: start: 20060222, end: 20060307
  8. IBUPROFEN. [Suspect]
     Active Substance: IBUPROFEN
     Dosage: 400 MILLIGRAM, TID
     Route: 048

REACTIONS (6)
  - Gamma-glutamyltransferase increased [Recovering/Resolving]
  - Hepatic function abnormal [Recovering/Resolving]
  - Jaundice [Recovering/Resolving]
  - Aspartate aminotransferase increased [Recovering/Resolving]
  - Alanine aminotransferase increased [Recovering/Resolving]
  - Hepatitis [Recovering/Resolving]

NARRATIVE: CASE EVENT DATE: 20060308
